FAERS Safety Report 12308055 (Version 1)
Quarter: 2016Q2

REPORT INFORMATION
  Report Type: Report from Study
  Country: GB (occurrence: GB)
  Receive Date: 20160426
  Receipt Date: 20160426
  Transmission Date: 20160815
  Serious: Yes (Death)
  Sender: FDA-Public Use
  Company Number: GB-009507513-1604GBR013394

PATIENT
  Age: 71 Year
  Sex: Male
  Weight: 68 kg

DRUGS (7)
  1. DERMOL (BENZALKONIUM CHLORIDE (+) ISOPROPYL MYRISTATE (+) MINERAL OIL) [Concomitant]
     Indication: MYCOSIS FUNGOIDES
     Dosage: UNK
     Dates: start: 201309
  2. ZOPICLONE [Concomitant]
     Active Substance: ZOPICLONE
     Indication: INSOMNIA
     Dosage: UNK
     Dates: start: 20151201
  3. VORINOSTAT [Suspect]
     Active Substance: VORINOSTAT
     Indication: MYCOSIS FUNGOIDES
     Dosage: 400 MG QD
     Route: 048
     Dates: start: 20151002, end: 20160112
  4. DOUBLEBASE [Concomitant]
     Active Substance: ISOPROPYL MYRISTATE\PARAFFIN
     Indication: MYCOSIS FUNGOIDES
     Dosage: UNK
     Dates: start: 201309
  5. CHLORAMPHENICOL [Concomitant]
     Active Substance: CHLORAMPHENICOL
     Indication: BLEPHARITIS
     Dosage: UNK
     Dates: start: 201412
  6. TRIMETHOPRIM. [Concomitant]
     Active Substance: TRIMETHOPRIM
     Indication: WOUND INFECTION STAPHYLOCOCCAL
     Dosage: UNK
     Dates: start: 20151223
  7. MUPIROCIN. [Concomitant]
     Active Substance: MUPIROCIN
     Indication: WOUND INFECTION STAPHYLOCOCCAL
     Dosage: CREAM
     Dates: start: 20151223

REACTIONS (5)
  - Disease progression [Fatal]
  - Hypertension [Unknown]
  - Diarrhoea [Unknown]
  - Left ventricular hypertrophy [Fatal]
  - Pneumonia [Fatal]

NARRATIVE: CASE EVENT DATE: 20160112
